FAERS Safety Report 6860898-4 (Version None)
Quarter: 2010Q3

REPORT INFORMATION
  Report Type: 
  Country: None (occurrence: None)
  Receive Date: 20100715
  Receipt Date: 20100630
  Transmission Date: 20110219
  Serious: Yes (Other)
  Sender: FDA-Public Use
  Company Number: LMI-2010-00573

PATIENT
  Age: 60 Year
  Sex: Male
  Weight: 149.687 kg

DRUGS (13)
  1. DEFINITY [Suspect]
     Indication: CORONARY ARTERY DISEASE
     Dosage: 1.5 ML DEFINITY DILUTED WITH 8.5
     Dates: start: 20100630, end: 20100630
  2. NOVOLOG [Concomitant]
  3. LANTUS (INSULIN GLSRGINE) [Concomitant]
  4. SIMVASTATIN [Concomitant]
  5. METOPROLOL TARTRATE [Concomitant]
  6. ASPIRIN [Concomitant]
  7. PREVACID [Concomitant]
  8. BUMEX [Concomitant]
  9. HYDRALAZINE HCL [Concomitant]
  10. FLOMAX (TAMSULOSIN HYDROCHLOIRDE) [Concomitant]
  11. ISORDEL TARTRATE (ISOSORBIDE DINITRATE) [Concomitant]
  12. KLOR-CON [Concomitant]
  13. ULTRAM [Concomitant]

REACTIONS (5)
  - BLOOD PRESSURE SYSTOLIC INCREASED [None]
  - DRUG INEFFECTIVE [None]
  - HYPERSENSITIVITY [None]
  - RESPIRATORY DISTRESS [None]
  - THROAT TIGHTNESS [None]
